FAERS Safety Report 12188588 (Version 3)
Quarter: 2016Q2

REPORT INFORMATION
  Report Type: Spontaneous
  Country: FR (occurrence: FR)
  Receive Date: 20160317
  Receipt Date: 20160505
  Transmission Date: 20160815
  Serious: Yes (Other)
  Sender: FDA-Public Use
  Company Number: FR-SEPTODONT-201603277

PATIENT
  Age: 60 Year
  Sex: Female

DRUGS (11)
  1. SPECIAFOLDINE 5 MG, COMPRIM? [Concomitant]
     Indication: FOLATE DEFICIENCY
     Route: 048
  2. CRESTOR 5 MG, COMPRIM? PELLICUL? [Concomitant]
     Indication: HYPOLIPIDAEMIA
  3. DELTAZINE 40 MG/ML ADR?NALIN?E AU 1/200.000 [Suspect]
     Active Substance: ARTICAINE\EPINEPHRINE
     Indication: LOCAL ANAESTHESIA
     Route: 004
     Dates: start: 20160301
  4. SEVIKAR 40 MG/10 MG, COMPRIM? PELLICUL? [Concomitant]
     Indication: HYPERTENSION
     Route: 048
  5. DOLIPRANE 1000 MG, COMPRIM? [Concomitant]
     Indication: PAIN
     Route: 048
  6. TEMERIT 5 MG, COMPRIM? QUADRIS?CABLE [Concomitant]
     Indication: HYPERTENSION
     Route: 048
  7. LYRICA 25 MG, G?LULE [Concomitant]
     Indication: NEURALGIA
     Route: 048
  8. LEVOTHYROX 100 MICROGRAMMES, COMPRIM? S?CABLE [Concomitant]
     Indication: HYPOTHYROIDISM
     Route: 048
  9. METFORMINE ARROW 500 MG, COMPRIM? PELLICUL? [Concomitant]
     Indication: TYPE 2 DIABETES MELLITUS
     Route: 048
  10. NOVATREX 2,5 MG, COMPRIM? [Concomitant]
     Indication: ANKYLOSING SPONDYLITIS
     Route: 048
  11. PANTOPRAZOLE ARROW 20 MG, COMPRIM? GASTROR?SISTANT [Concomitant]
     Indication: GASTROOESOPHAGEAL REFLUX DISEASE
     Route: 048

REACTIONS (3)
  - Loss of consciousness [Recovered/Resolved]
  - Eye movement disorder [Recovered/Resolved]
  - Presyncope [Recovered/Resolved]

NARRATIVE: CASE EVENT DATE: 20160301
